FAERS Safety Report 15530478 (Version 3)
Quarter: 2018Q4

REPORT INFORMATION
  Report Type: Report from Study
  Country: CO (occurrence: CO)
  Receive Date: 20181018
  Receipt Date: 20181203
  Transmission Date: 20190205
  Serious: Yes (Death, Hospitalization)
  Sender: FDA-Public Use
  Company Number: PHHY2018CO130442

PATIENT
  Age: 65 Year
  Sex: Male
  Weight: 94 kg

DRUGS (1)
  1. TASIGNA [Suspect]
     Active Substance: NILOTINIB
     Indication: CHRONIC MYELOID LEUKAEMIA
     Dosage: 600 MG, QD
     Route: 048

REACTIONS (6)
  - Pyrexia [Unknown]
  - Influenza [Unknown]
  - Product prescribing error [Unknown]
  - Cerebral ischaemia [Fatal]
  - Seizure [Unknown]
  - Inappropriate schedule of product administration [Unknown]

NARRATIVE: CASE EVENT DATE: 20181011
